FAERS Safety Report 8539141-6 (Version None)
Quarter: 2012Q3

REPORT INFORMATION
  Report Type: 
  Country: None (occurrence: None)
  Receive Date: 20120713
  Receipt Date: 20120629
  Transmission Date: 20120928
  Serious: Yes (Hospitalization, Other)
  Sender: FDA-Public Use
  Company Number: 2012-000848

PATIENT
  Age: 65 Year
  Weight: 50.5 kg

DRUGS (23)
  1. ACTONEL [Suspect]
     Dosage: 35 MG ONCE WEEKLY, ORAL
     Route: 048
     Dates: start: 20040209
  2. TRIAMTERENE AND HYDROCHLOROTHIAZIDE (HYDROCHLOROTHIAZIDE, TRIAMTERENE) [Concomitant]
  3. PLAQUENIL /00072602/ (HYDROXYCHLOROQUINE PHOSPHATE) [Concomitant]
  4. LYRICA [Concomitant]
  5. ULTRAM [Concomitant]
  6. ESTRATAB [Concomitant]
  7. PREMARIN [Concomitant]
  8. RESTORIL /00393701/ (TEMAZEPAM) [Concomitant]
  9. HYDROXYZINE HCL [Concomitant]
  10. DICLOFENAC SODIUM [Concomitant]
  11. MECLIZINE /00072801/ (MECLOZINE) [Concomitant]
  12. GLUCOSAMINE (GLUCOSAMINE) [Concomitant]
  13. FOSAMAX [Suspect]
     Dates: start: 20030430
  14. VITAMIN E /00110501/ (TOCOPHEROL) [Concomitant]
  15. CLONAZEPAM [Concomitant]
  16. MIRALAX /00754501/ (MACROGOL) [Concomitant]
  17. WELLBUTRIN [Concomitant]
  18. PREVACID [Concomitant]
  19. IMITREX /01044801/ (SUMATRIPTAN) [Concomitant]
  20. BONIVA [Suspect]
     Indication: OSTEOPENIA
     Dosage: 150 MG ONCE MONTHLY, UNKNOWN
     Dates: start: 20100726
  21. FENTANYL [Concomitant]
  22. TIZANIDINE HCL [Concomitant]
  23. NEURONTIN [Concomitant]

REACTIONS (3)
  - FEMUR FRACTURE [None]
  - PAIN IN EXTREMITY [None]
  - QUALITY OF LIFE DECREASED [None]
